FAERS Safety Report 5793203-5 (Version None)
Quarter: 2008Q2

REPORT INFORMATION
  Report Type: 
  Country: None (occurrence: None)
  Receive Date: 20080626
  Receipt Date: 20080626
  Transmission Date: 20081010
  Serious: Yes (Other)
  Sender: FDA-Public Use
  Company Number: None

PATIENT
  Age: 82 Year
  Sex: Female
  Weight: 71.6683 kg

DRUGS (1)
  1. ZOMETA [Suspect]
     Indication: OSTEOPOROSIS
     Dosage: 5 MG YEARLY IV
     Route: 042
     Dates: start: 20080612, end: 20080612

REACTIONS (5)
  - DYSPNOEA [None]
  - MACULAR DEGENERATION [None]
  - PAIN [None]
  - VISUAL FIELD DEFECT [None]
  - WHEEZING [None]
